FAERS Safety Report 14323832 (Version 1)
Quarter: 2017Q4

REPORT INFORMATION
  Report Type: Spontaneous
  Country: US (occurrence: US)
  Receive Date: 20171222
  Receipt Date: 20171222
  Transmission Date: 20180321
  Serious: Yes (Hospitalization)
  Sender: FDA-Public Use
  Company Number: None

PATIENT
  Age: 55 Year
  Sex: Female
  Weight: 57.7 kg

DRUGS (3)
  1. LENALIDOMIDE (CC-5013) [Suspect]
     Active Substance: LENALIDOMIDE
     Dates: end: 20171213
  2. VELCADE [Suspect]
     Active Substance: BORTEZOMIB
     Dates: end: 20171213
  3. DEXAMETHASONE. [Suspect]
     Active Substance: DEXAMETHASONE
     Dates: end: 20171213

REACTIONS (3)
  - Vaginal haemorrhage [None]
  - Anaemia [None]
  - Hyponatraemia [None]

NARRATIVE: CASE EVENT DATE: 20171213
